FAERS Safety Report 22153175 (Version 2)
Quarter: 2023Q1

REPORT INFORMATION
  Report Type: Spontaneous
  Country: CN (occurrence: None)
  Receive Date: 20230329
  Receipt Date: 20230331
  Transmission Date: 20230417
  Serious: Yes (Death, Other)
  Sender: FDA-Public Use
  Company Number: 2023A072747

PATIENT
  Age: 60 Year

DRUGS (1)
  1. IMFINZI [Suspect]
     Active Substance: DURVALUMAB
     Indication: Small cell lung cancer
     Dosage: 1000.0MG UNKNOWN
     Route: 042

REACTIONS (2)
  - Malignant neoplasm progression [Fatal]
  - Myelosuppression [Recovering/Resolving]
